FAERS Safety Report 21189089 (Version 1)
Quarter: 2022Q3

REPORT INFORMATION
  Report Type: Spontaneous
  Country: CA (occurrence: CA)
  Receive Date: 20220809
  Receipt Date: 20220809
  Transmission Date: 20221026
  Serious: Yes (Death, Congenital Anomaly, Other)
  Sender: FDA-Public Use
  Company Number: CA-TEVA-2022-CA-2061436

PATIENT
  Weight: 1 kg

DRUGS (2)
  1. VALSARTAN [Suspect]
     Active Substance: VALSARTAN
     Indication: Hypertension
     Route: 064
  2. LASIX [Suspect]
     Active Substance: FUROSEMIDE
     Indication: Hypertension
     Route: 064

REACTIONS (6)
  - Hypocalvaria [Fatal]
  - Low birth weight baby [Fatal]
  - Neonatal anuria [Fatal]
  - Apgar score low [Fatal]
  - Foetal exposure during pregnancy [Fatal]
  - Premature baby [Fatal]
